FAERS Safety Report 9875755 (Version 3)
Quarter: 2014Q2

REPORT INFORMATION
  Report Type: Spontaneous
  Country: IT (occurrence: None)
  Receive Date: 20140204
  Receipt Date: 20140411
  Transmission Date: 20141212
  Serious: Yes (Other)
  Sender: FDA-Public Use
  Company Number: AUR-APL-2014-01098

PATIENT
  Age: 83 Year
  Sex: Female
  Weight: 66 kg

DRUGS (5)
  1. ESCITALOPRAM [Suspect]
     Indication: DEPRESSION
     Dosage: 5 MG, 1 IN 1 D
  2. ESCITALOPRAM [Suspect]
     Dosage: 5 MG, 1 IN 1 D
  3. GLIBENCLAMIDE [Suspect]
     Indication: TYPE 2 DIABETES MELLITUS
     Dosage: 22.5 MG (7.5 MG, 3 IN 1 D), UNKNOWN
  4. ENALAPRIL W/HYDROCHLOROTHIAZIDE (ENAP -HL/06436201/) [Concomitant]
  5. DOXAZOSIN (DOXAZOSIN) [Concomitant]

REACTIONS (7)
  - Hyperglycaemia [None]
  - Diabetes mellitus inadequate control [None]
  - Drug interaction [None]
  - Glycosylated haemoglobin increased [None]
  - Depression [None]
  - Insomnia [None]
  - Depressed mood [None]
